FAERS Safety Report 24975063 (Version 2)
Quarter: 2025Q1

REPORT INFORMATION
  Report Type: Spontaneous
  Country: US (occurrence: US)
  Receive Date: 20250217
  Receipt Date: 20250228
  Transmission Date: 20250408
  Serious: Yes (Life-Threatening, Hospitalization)
  Sender: TEVA
  Company Number: US-TEVA-VS-3297734

PATIENT
  Age: 44 Year
  Sex: Female

DRUGS (1)
  1. COLCHICINE [Suspect]
     Active Substance: COLCHICINE
     Indication: Pericarditis
     Route: 065

REACTIONS (12)
  - Intentional overdose [Unknown]
  - Lactic acidosis [Recovering/Resolving]
  - Anuria [Recovering/Resolving]
  - Toxicity to various agents [Recovering/Resolving]
  - Acute kidney injury [Recovering/Resolving]
  - Hypertransaminasaemia [Recovering/Resolving]
  - Thrombocytopenia [Recovering/Resolving]
  - Multiple organ dysfunction syndrome [Recovering/Resolving]
  - Respiratory failure [Recovering/Resolving]
  - Leukopenia [Recovering/Resolving]
  - Intentional product misuse [Unknown]
  - Hypotension [Recovering/Resolving]
